FAERS Safety Report 10412583 (Version 1)
Quarter: 2014Q3

REPORT INFORMATION
  Report Type: Spontaneous
  Country: US (occurrence: None)
  Receive Date: 20140822
  Receipt Date: 20140822
  Transmission Date: 20150326
  Serious: Yes (Death)
  Sender: FDA-Public Use
  Company Number: 2014US01139

PATIENT
  Sex: Female

DRUGS (2)
  1. ZIDOVUDINE (ZIDOVUDINE) TABLET [Suspect]
     Active Substance: ZIDOVUDINE
     Indication: HUMAN IMMUNODEFICIENCY VIRUS TRANSMISSION
     Dosage: 300 MG TWICE A DAY FROM 36 WEEKS GESTATION UNTIL ONSET OF LABOR
  2. ZIDOVUDINE (ZIDOVUDINE) TABLET [Suspect]
     Active Substance: ZIDOVUDINE
     Indication: PROPHYLAXIS
     Dosage: 300 MG TWICE A DAY FROM 36 WEEKS GESTATION UNTIL ONSET OF LABOR

REACTIONS (1)
  - Death [None]

NARRATIVE: CASE EVENT DATE: 2002
